FAERS Safety Report 6558265-6 (Version None)
Quarter: 2010Q1

REPORT INFORMATION
  Report Type: 
  Country: None (occurrence: None)
  Receive Date: 20100128
  Receipt Date: 20100128
  Transmission Date: 20100710
  Serious: Yes (Other)
  Sender: FDA-Public Use
  Company Number: None

PATIENT
  Age: 49 Year
  Sex: Female
  Weight: 56.246 kg

DRUGS (3)
  1. LEVAQUIN [Suspect]
     Indication: SINUSITIS
     Dosage: 1 TABLET EVERY MORNING MOUTH
     Route: 048
     Dates: start: 20100113
  2. LEVAQUIN [Suspect]
     Indication: SINUSITIS
     Dosage: 1 TABLET EVERY MORNING MOUTH
     Route: 048
     Dates: start: 20100114
  3. LEVAQUIN [Suspect]
     Indication: SINUSITIS
     Dosage: 1 TABLET EVERY MORNING MOUTH
     Route: 048
     Dates: start: 20100115

REACTIONS (3)
  - EYE PRURITUS [None]
  - HYPERSENSITIVITY [None]
  - URTICARIA [None]
